FAERS Safety Report 7113562-0 (Version None)
Quarter: 2010Q4

REPORT INFORMATION
  Report Type: 
  Country: None (occurrence: None)
  Receive Date: 20101119
  Receipt Date: 20100504
  Transmission Date: 20110411
  Serious: Yes (Other)
  Sender: FDA-Public Use
  Company Number: CA-ROCHE-711758

PATIENT
  Sex: Female
  Weight: 44.3 kg

DRUGS (13)
  1. BEVACIZUMAB [Suspect]
     Indication: MALIGNANT MEDIASTINAL NEOPLASM
     Dosage: FORM: INFUSION
     Route: 042
     Dates: start: 20100401
  2. BEVACIZUMAB [Suspect]
     Dosage: RE-STARTED
     Route: 042
  3. CARVEDILOL [Suspect]
     Indication: BLOOD PRESSURE INCREASED
     Dosage: DOSE REPORTED: VARIOUS DOSES
     Route: 065
     Dates: start: 20100504
  4. CARVEDILOL [Suspect]
     Route: 065
  5. CARVEDILOL [Suspect]
     Route: 065
  6. CARVEDILOL [Suspect]
     Route: 065
  7. SUTENT [Suspect]
     Indication: MALIGNANT MEDIASTINAL NEOPLASM
     Dosage: INTERRUPTED
     Route: 065
  8. SUTENT [Suspect]
     Route: 065
  9. DIGOXIN [Suspect]
     Route: 065
  10. DIGOXIN [Suspect]
     Dosage: DOSE DOUBLED
     Route: 065
  11. AMITRIPTYLINE HCL [Concomitant]
     Indication: ANTIDEPRESSANT THERAPY
  12. PERINDOPRIL ERBUMINE [Concomitant]
  13. CLINDAMYCIN [Concomitant]
     Indication: INFECTION
     Dates: end: 20100615

REACTIONS (14)
  - BLOOD PRESSURE INCREASED [None]
  - COUGH [None]
  - DERMATITIS CONTACT [None]
  - DIZZINESS [None]
  - DYSPHONIA [None]
  - DYSPNOEA [None]
  - INCISION SITE INFECTION [None]
  - INFLUENZA [None]
  - LEFT VENTRICULAR DYSFUNCTION [None]
  - MALIGNANT NEOPLASM PROGRESSION [None]
  - NAUSEA [None]
  - PARAESTHESIA [None]
  - PLATELET COUNT DECREASED [None]
  - WEIGHT DECREASED [None]
